FAERS Safety Report 6115550-X (Version None)
Quarter: 2009Q1

REPORT INFORMATION
  Report Type: 
  Country: None (occurrence: None)
  Receive Date: 20090313
  Receipt Date: 20090303
  Transmission Date: 20090719
  Serious: Yes (Death)
  Sender: FDA-Public Use
  Company Number: NL-ROCHE-439297

PATIENT
  Sex: Female

DRUGS (10)
  1. CAPECITABINE [Suspect]
     Dosage: TAKEN ON DAYS 1 TO 14 OUT OF EACH 3 WEEK CYCLE, SHE HAD ONLY ONE CYCLE
     Route: 048
     Dates: start: 20060222
  2. BEVACIZUMAB [Suspect]
     Route: 042
     Dates: start: 20060222
  3. OXALIPLATIN [Suspect]
     Route: 042
     Dates: start: 20060222
  4. DURAGESIC-100 [Concomitant]
  5. AMARYL [Concomitant]
  6. MOVICOLON [Concomitant]
     Dosage: DRUG NAME: MOVICOLON ^DD^
  7. NAPROXEN [Concomitant]
     Dosage: FREQUENCY: THRICE
  8. PANTOZOL [Concomitant]
  9. DEXAMETHASONE TAB [Concomitant]
     Dosage: FREQUENCY: TWICE
  10. AMITRIPTYLINE [Concomitant]

REACTIONS (2)
  - GASTROINTESTINAL PERFORATION [None]
  - PNEUMONIA [None]
